FAERS Safety Report 19681184 (Version 3)
Quarter: 2021Q3

REPORT INFORMATION
  Report Type: Report from Study
  Country: IT (occurrence: IT)
  Receive Date: 20210810
  Receipt Date: 20210827
  Transmission Date: 20211014
  Serious: Yes (Disabling, Other)
  Sender: FDA-Public Use
  Company Number: IT-GW PHARMA-202108ITGW03764

PATIENT

DRUGS (6)
  1. DEPAKINE [VALPROATE SODIUM] [Concomitant]
     Active Substance: VALPROATE SODIUM
     Indication: INFANTILE SPASMS
     Dosage: 750 MILLIGRAM, QD
     Route: 065
     Dates: start: 20070601
  2. CLOBAZAM. [Concomitant]
     Active Substance: CLOBAZAM
     Indication: LENNOX-GASTAUT SYNDROME
     Dosage: 10 MILLIGRAM, QD
     Route: 065
     Dates: start: 20210323
  3. EPIDIOLEX [Suspect]
     Active Substance: CANNABIDIOL
     Dosage: 8 MG/KG/DAY, 392 MILLIGRAM, QD
     Route: 048
     Dates: start: 202107
  4. RUFINAMIDE [Suspect]
     Active Substance: RUFINAMIDE
     Indication: LENNOX-GASTAUT SYNDROME
     Dosage: 1200 MILLIGRAM, QD
     Route: 065
     Dates: start: 20170201
  5. LACOSAMIDE. [Concomitant]
     Active Substance: LACOSAMIDE
     Indication: LENNOX-GASTAUT SYNDROME
     Dosage: 300 MILLIGRAM, QD
     Route: 065
     Dates: start: 20180329
  6. EPIDIOLEX [Suspect]
     Active Substance: CANNABIDIOL
     Indication: LENNOX-GASTAUT SYNDROME
     Dosage: 20 MG/KG/DAY, 980 MILLIGRAM, QD
     Route: 048
     Dates: start: 20210425, end: 202107

REACTIONS (1)
  - Psychomotor hyperactivity [Recovering/Resolving]

NARRATIVE: CASE EVENT DATE: 20210615
